FAERS Safety Report 10218582 (Version 1)
Quarter: 2014Q2

REPORT INFORMATION
  Report Type: Spontaneous
  Country: US (occurrence: None)
  Receive Date: 20140604
  Receipt Date: 20140604
  Transmission Date: 20141212
  Serious: No
  Sender: FDA-Public Use
  Company Number: None

PATIENT
  Age: 89 Year
  Sex: Male

DRUGS (1)
  1. PREDNISONE 5MG [Suspect]
     Indication: PRODUCT USED FOR UNKNOWN INDICATION
     Dosage: 5MG, QDAY, PO?
     Route: 048
     Dates: start: 20140512

REACTIONS (4)
  - Nasopharyngitis [None]
  - Cough [None]
  - Blood blister [None]
  - Productive cough [None]
